FAERS Safety Report 6333273-9 (Version None)
Quarter: 2009Q3

REPORT INFORMATION
  Report Type: 
  Country: None (occurrence: None)
  Receive Date: 20090828
  Receipt Date: 20090824
  Transmission Date: 20100115
  Serious: Yes (Hospitalization, Other)
  Sender: FDA-Public Use
  Company Number: TW-ROXANE LABORATORIES, INC.-2009-RO-00863RO

PATIENT
  Age: 53 Year
  Sex: Male

DRUGS (6)
  1. OXCARBAZEPINE [Suspect]
     Indication: EPILEPSY
     Dates: start: 20070709
  2. AMLODIPINE [Suspect]
     Dates: start: 19990101
  3. ENALAPRIL MALEATE [Suspect]
     Dates: start: 19990101
  4. ASPIRIN [Suspect]
     Dates: start: 19990101
  5. PHENOBARBITAL [Suspect]
     Indication: CONVULSION
     Dates: start: 20021201, end: 20030301
  6. VALPROIC ACID [Suspect]
     Indication: CONVULSION
     Dates: start: 20030301

REACTIONS (3)
  - CONJUNCTIVITIS [None]
  - EPILEPSY [None]
  - STEVENS-JOHNSON SYNDROME [None]
